FAERS Safety Report 7108790 (Version 4)
Quarter: 2013Q1

REPORT INFORMATION
  Report Type: Spontaneous
  Country: DE (occurrence: None)
  Receive Date: 20090820
  Receipt Date: 20121005
  Transmission Date: 20140127
  Serious: Yes (Life-Threatening, Hospitalization, Other)
  Sender: FDA-Public Use
  Company Number: THYM-1001156

PATIENT
  Age: 69 Year
  Sex: Male
  Weight: 86 kg

DRUGS (21)
  1. THYMOGLOBULIN [Suspect]
     Indication: RENAL TRANSPLANT
     Dosage: 135 MG, INTRAVENOUS
     Route: 042
     Dates: start: 20081230, end: 20090101
  2. TACROLIMUS (TACROLIMUS) TABLET [Concomitant]
     Route: 048
     Dates: start: 20081230, end: 20090103
  3. MYCOPHENOLATE MOFETIL  (MYCOPHENOLATE MOFETIL) [Concomitant]
     Route: 048
     Dates: start: 20081230, end: 20090106
  4. DECALFIN H (DECALFIN H) [Concomitant]
  5. PREDNISONE [Concomitant]
  6. AMLODIPINE [Concomitant]
  7. BISOPROLOL FUMARATE [Concomitant]
  8. LEVOTHYROXINE SODIUM [Concomitant]
  9. PANTOZOL [Concomitant]
  10. BICANORM (SODIUM CARBONATE ANHYDROUS) [Concomitant]
  11. TORSEMIDE [Concomitant]
  12. COTRIM FORTE EU RHO (SULFAMETHOXAZOLE, TRIMETHOPRIM) [Concomitant]
  13. VALCYTE [Concomitant]
  14. CALCIMAGON-D 3 (CALCIUM CARBONATE, COLECALCIFEROL) [Concomitant]
  15. CYNT (MOXONIDINE) [Concomitant]
  16. RAMIPRIL [Concomitant]
  17. MCP [Concomitant]
  18. TARVAMIC [Concomitant]
  19. ESPUMISAN (DIMETICONE) [Concomitant]
  20. AUGMENTAN (AMOXICILLIN SODIUM, CLAVULANATE POTASSIUM) [Concomitant]
  21. ACTRAPID (INSULIN HUMAN) [Concomitant]

REACTIONS (20)
  - Respiratory failure [None]
  - Pulmonary haemorrhage [None]
  - Polyneuropathy [None]
  - Neuroendocrine tumour [None]
  - Pulmonary mass [None]
  - Vertigo [None]
  - Dysphagia [None]
  - Diverticulitis [None]
  - Nausea [None]
  - Peritonitis [None]
  - Procalcitonin increased [None]
  - Sepsis [None]
  - Acute abdomen [None]
  - Large intestine perforation [None]
  - Post procedural complication [None]
  - Weaning failure [None]
  - Urinary tract infection enterococcal [None]
  - Urinary tract infection pseudomonal [None]
  - Wound infection staphylococcal [None]
  - Impaired healing [None]
